FAERS Safety Report 5157507-1 (Version None)
Quarter: 2006Q4

REPORT INFORMATION
  Report Type: 
  Country: None (occurrence: None)
  Receive Date: 20061127
  Receipt Date: 20060907
  Transmission Date: 20070319
  Serious: Yes (Other)
  Sender: FDA-Public Use
  Company Number: FR-GLAXOSMITHKLINE-B0438224A

PATIENT
  Age: 70 Year
  Sex: Male
  Weight: 80 kg

DRUGS (6)
  1. ZYBAN [Suspect]
     Dosage: 150MG PER DAY
     Route: 048
     Dates: start: 20060801, end: 20060907
  2. SPIRIVA [Concomitant]
     Dosage: 18MCG PER DAY
     Route: 055
     Dates: start: 20060725
  3. BUDESONIDE [Concomitant]
     Dosage: 200MCG TWICE PER DAY
     Route: 055
     Dates: start: 20060725, end: 20060919
  4. PNEUMO 23 [Concomitant]
     Dates: start: 20060828
  5. LEVOFLOXACIN [Concomitant]
  6. CIBLOR [Concomitant]
     Dates: start: 20060707

REACTIONS (8)
  - AFFECTIVE DISORDER [None]
  - ASTHENIA [None]
  - BLOOD BILIRUBIN INCREASED [None]
  - CONFUSIONAL STATE [None]
  - CYTOLYTIC HEPATITIS [None]
  - DISTURBANCE IN ATTENTION [None]
  - GAMMA-GLUTAMYLTRANSFERASE INCREASED [None]
  - TRANSAMINASES INCREASED [None]
